FAERS Safety Report 25628285 (Version 1)
Quarter: 2025Q3

REPORT INFORMATION
  Report Type: Spontaneous
  Country: EU (occurrence: EU)
  Receive Date: 20250731
  Receipt Date: 20250731
  Transmission Date: 20251021
  Serious: Yes (Other)
  Sender: LUNDBECK
  Company Number: EU-SA-2025SA213961

PATIENT
  Age: 22 Year
  Sex: Female

DRUGS (13)
  1. SABRIL [Suspect]
     Active Substance: VIGABATRIN
     Indication: Petit mal epilepsy
     Dosage: 4 DF, QD
     Dates: start: 199508, end: 19970221
  2. SABRIL [Suspect]
     Active Substance: VIGABATRIN
     Indication: Epilepsy
  3. VALPROATE SODIUM [Suspect]
     Active Substance: VALPROATE SODIUM
     Indication: Epilepsy
     Dosage: 1 DF, BID (ONE TABLET IN THE MORNING AND EVENING)
     Dates: start: 198812, end: 19940901
  4. VALPROATE SODIUM [Suspect]
     Active Substance: VALPROATE SODIUM
     Dosage: 2.5 DF, BID (TWO AND A HALF TABLETS IN THE EVENING)
     Dates: start: 19940902, end: 199508
  5. VALPROATE SODIUM [Suspect]
     Active Substance: VALPROATE SODIUM
     Dosage: 2 DF, QD
     Dates: start: 199508, end: 1996
  6. VALPROATE SODIUM [Suspect]
     Active Substance: VALPROATE SODIUM
     Dosage: 3 DF, QD
     Dates: start: 1996, end: 1996
  7. VALPROATE SODIUM [Suspect]
     Active Substance: VALPROATE SODIUM
     Dosage: 2 DF, QD
     Dates: start: 1996, end: 19961226
  8. VALPROATE SODIUM [Suspect]
     Active Substance: VALPROATE SODIUM
     Dosage: 3 DF, QD
     Dates: start: 19961227
  9. VALPROATE SODIUM [Suspect]
     Active Substance: VALPROATE SODIUM
     Dosage: 4 DF, QD
  10. VALPROATE SODIUM [Suspect]
     Active Substance: VALPROATE SODIUM
     Dosage: 3 DF, QD
  11. RIVOTRIL [Concomitant]
     Active Substance: CLONAZEPAM
     Indication: Seizure
  12. TEGRETOL [Concomitant]
     Active Substance: CARBAMAZEPINE
     Indication: Product used for unknown indication
  13. FERROUS SULFATE [Concomitant]
     Active Substance: FERROUS SULFATE
     Indication: Product used for unknown indication

REACTIONS (16)
  - Temporal lobe epilepsy [Recovering/Resolving]
  - Condition aggravated [Recovering/Resolving]
  - Aphasia [Recovering/Resolving]
  - Altered state of consciousness [Recovering/Resolving]
  - Confusional state [Recovering/Resolving]
  - Headache [Recovering/Resolving]
  - Automatism [Recovering/Resolving]
  - Drug ineffective [Recovering/Resolving]
  - Focal dyscognitive seizures [Unknown]
  - Attention deficit hyperactivity disorder [Unknown]
  - Petit mal epilepsy [Unknown]
  - Pre-eclampsia [Unknown]
  - Maternal exposure during pregnancy [Unknown]
  - Hyperuricaemia [Unknown]
  - Uterine scar [Unknown]
  - Bradycardia [Unknown]

NARRATIVE: CASE EVENT DATE: 19940101
